FAERS Safety Report 13089360 (Version 4)
Quarter: 2017Q1

REPORT INFORMATION
  Report Type: Spontaneous
  Country: US (occurrence: US)
  Receive Date: 20170105
  Receipt Date: 20170320
  Transmission Date: 20170428
  Serious: No
  Sender: FDA-Public Use
  Company Number: US-PFIZER INC-2016598564

PATIENT
  Age: 56 Year
  Sex: Female

DRUGS (2)
  1. LETROZOLE. [Suspect]
     Active Substance: LETROZOLE
     Indication: BREAST CANCER
     Dosage: UNK
  2. IBRANCE [Suspect]
     Active Substance: PALBOCICLIB
     Indication: BREAST CANCER
     Dosage: 100 MG, CYCLIC, (1 CAPSULE BY MOUTH DAILY FOR 21 DAYS AND STOP 7 DAYS)
     Route: 048
     Dates: start: 201612

REACTIONS (6)
  - Stomatitis [Unknown]
  - Pain of skin [Unknown]
  - Alopecia [Unknown]
  - Dry skin [Unknown]
  - Skin fissures [Unknown]
  - White blood cell count decreased [Unknown]
